FAERS Safety Report 16090690 (Version 1)
Quarter: 2019Q1

REPORT INFORMATION
  Report Type: Spontaneous
  Country: US (occurrence: US)
  Receive Date: 20190319
  Receipt Date: 20190319
  Transmission Date: 20190418
  Serious: Yes (Other)
  Sender: FDA-Public Use
  Company Number: US-ASPEN-GLO2019US002317

PATIENT
  Age: 22 Year
  Sex: Male

DRUGS (5)
  1. ZOLPIDEM [Concomitant]
     Active Substance: ZOLPIDEM\ZOLPIDEM TARTRATE
     Indication: PRODUCT USED FOR UNKNOWN INDICATION
     Dosage: 5 MG, QD
     Route: 065
  2. BENZTROPINE MESYLATE. [Suspect]
     Active Substance: BENZTROPINE MESYLATE
     Dosage: DOSE REDUCED
     Route: 042
  3. BROMOCRIPTINE [Concomitant]
     Active Substance: BROMOCRIPTINE
     Indication: NEUROLEPTIC MALIGNANT SYNDROME
     Dosage: 5 MG, QID
     Route: 050
  4. BENZTROPINE MESYLATE. [Suspect]
     Active Substance: BENZTROPINE MESYLATE
     Dosage: 0.5 MG, BID
     Route: 048
  5. BENZTROPINE MESYLATE. [Suspect]
     Active Substance: BENZTROPINE MESYLATE
     Indication: MUSCLE RIGIDITY
     Dosage: 0.5 MG, BID
     Route: 042

REACTIONS (2)
  - Urinary retention [Recovering/Resolving]
  - Urinary tract infection [Unknown]
